FAERS Safety Report 5945978-X (Version None)
Quarter: 2008Q4

REPORT INFORMATION
  Report Type: 
  Country: None (occurrence: None)
  Receive Date: 20081107
  Receipt Date: 20081107
  Transmission Date: 20090506
  Serious: Yes (Death)
  Sender: FDA-Public Use
  Company Number: None

PATIENT
  Age: 59 Year
  Sex: Female
  Weight: 50.3493 kg

DRUGS (1)
  1. DIGITEK 125 MCG ACTAVIS TOTOWA [Suspect]
     Indication: CARDIAC DISORDER
     Dosage: 125 MCG ONE DAILY BY MOUTH
     Route: 048
     Dates: start: 20080111, end: 20080423

REACTIONS (1)
  - DEATH [None]
